FAERS Safety Report 7659180-7 (Version None)
Quarter: 2011Q3

REPORT INFORMATION
  Report Type: 
  Country: None (occurrence: None)
  Receive Date: 20110805
  Receipt Date: 20110802
  Transmission Date: 20111222
  Serious: Yes (Other)
  Sender: FDA-Public Use
  Company Number: HR-GLAXOSMITHKLINE-B0737179A

PATIENT
  Age: 47 Year
  Sex: Female

DRUGS (1)
  1. PROPAFENONE HCL [Suspect]
     Indication: ATRIAL FIBRILLATION
     Dosage: 150MG THREE TIMES PER DAY
     Dates: start: 20110516, end: 20110606

REACTIONS (4)
  - VISION BLURRED [None]
  - DRY MOUTH [None]
  - FATIGUE [None]
  - VERTIGO [None]
